FAERS Safety Report 8032965-3 (Version None)
Quarter: 2012Q1

REPORT INFORMATION
  Report Type: 
  Country: None (occurrence: None)
  Receive Date: 20120110
  Receipt Date: 20111230
  Transmission Date: 20120608
  Serious: Yes (Hospitalization, Other)
  Sender: FDA-Public Use
  Company Number: US-NAPPMUNDI-USA-2011-0080406

PATIENT
  Age: 57 Year
  Sex: Female
  Weight: 58.957 kg

DRUGS (6)
  1. HYDROMORPHONE HCL [Suspect]
     Indication: BACK PAIN
     Dosage: 2 MG, PRN
     Dates: start: 20110301
  2. GABAPENTIN [Suspect]
     Indication: BACK PAIN
     Dosage: 300 MG, DAILY
     Dates: start: 20110301
  3. CHANTIX [Suspect]
     Indication: SMOKING CESSATION THERAPY
     Dosage: UNK
     Dates: start: 20111015
  4. PERCOCET [Suspect]
     Indication: BACK PAIN
     Dosage: 10 MG, Q4H
     Dates: start: 20110301
  5. IBUPROFEN [Suspect]
     Indication: BACK PAIN
     Dosage: UNK, TID
     Dates: start: 20110301
  6. DIAZEPAM [Suspect]
     Indication: BACK PAIN
     Dosage: 5 MG, TID
     Dates: start: 20110301

REACTIONS (5)
  - BACK PAIN [None]
  - DRUG INEFFECTIVE [None]
  - SPINAL FUSION SURGERY [None]
  - MALAISE [None]
  - NAUSEA [None]
